FAERS Safety Report 9660963 (Version 1)
Quarter: 2013Q4

REPORT INFORMATION
  Report Type: Spontaneous
  Country: BR (occurrence: BR)
  Receive Date: 20131031
  Receipt Date: 20131031
  Transmission Date: 20140711
  Serious: Yes (Other)
  Sender: FDA-Public Use
  Company Number: BR-NOVOPROD-390896

PATIENT
  Age: 66 Year
  Sex: Male
  Weight: 62 kg

DRUGS (7)
  1. NOVOLIN N PENFILL [Suspect]
     Indication: TYPE 2 DIABETES MELLITUS
     Dosage: 40 IU IN THE MORNING + 30 IU AT NIGHT
     Route: 058
     Dates: start: 1998
  2. METFORMIN [Concomitant]
     Indication: TYPE 2 DIABETES MELLITUS
     Dosage: 2 TAB, QD
     Route: 048
  3. BRILINTA [Concomitant]
     Indication: CARDIAC DISORDER
     Dosage: 2 TAB, QD
     Route: 048
  4. ENALAPRIL [Concomitant]
     Indication: HYPERTENSION
     Dosage: 0.5 TAB DAILY
     Route: 048
  5. CITONEURIN                         /00176001/ [Concomitant]
     Indication: NEURALGIA
     Dosage: 1 TAB EACH 15 DAYS
     Route: 048
  6. SUSTRATE [Concomitant]
     Dosage: 2 TAB, QD
     Route: 048
  7. PERIDAL                            /00498201/ [Concomitant]
     Indication: GASTROOESOPHAGEAL REFLUX DISEASE
     Dosage: 1 TAB, QD
     Route: 048

REACTIONS (5)
  - Syncope [Recovered/Resolved]
  - Diabetes mellitus inadequate control [Not Recovered/Not Resolved]
  - Injection site induration [Unknown]
  - Application site pain [Unknown]
  - Drug ineffective [Unknown]
